APPROVED DRUG PRODUCT: PRINCIPEN
Active Ingredient: AMPICILLIN/AMPICILLIN TRIHYDRATE
Strength: EQ 100MG BASE/ML
Dosage Form/Route: FOR SUSPENSION;ORAL
Application: A061394 | Product #001
Applicant: APOTHECON INC DIV BRISTOL MYERS SQUIBB
Approved: Approved Prior to Jan 1, 1982 | RLD: No | RS: No | Type: DISCN